FAERS Safety Report 17563167 (Version 1)
Quarter: 2020Q1

REPORT INFORMATION
  Report Type: Spontaneous
  Country: US (occurrence: US)
  Receive Date: 20200312
  Receipt Date: 20200312
  Transmission Date: 20200409
  Serious: No
  Sender: FDA-Public Use
  Company Number: None

PATIENT
  Age: 71 Year
  Sex: Male

DRUGS (1)
  1. PRUCALOPRIDE (PRUCALOPRIDE 2MG TAB) [Suspect]
     Active Substance: PRUCALOPRIDE
     Indication: CONSTIPATION
     Dates: start: 20190202, end: 20191210

REACTIONS (2)
  - Confusional state [None]
  - Myoclonus [None]

NARRATIVE: CASE EVENT DATE: 20191211
